FAERS Safety Report 7609996-8 (Version None)
Quarter: 2011Q3

REPORT INFORMATION
  Report Type: 
  Country: None (occurrence: None)
  Receive Date: 20110714
  Receipt Date: 20110714
  Transmission Date: 20111222
  Serious: Yes (Other)
  Sender: FDA-Public Use
  Company Number: DE-ABBOTT-11P-062-0836819-00

PATIENT
  Age: 26 Year
  Sex: Male

DRUGS (2)
  1. TRUVADA [Suspect]
     Indication: HIV INFECTION
  2. KALETRA [Suspect]
     Indication: HIV INFECTION

REACTIONS (3)
  - IMMUNE RECONSTITUTION SYNDROME [None]
  - CEREBRAL DISORDER [None]
  - ATYPICAL MYCOBACTERIAL INFECTION [None]
